FAERS Safety Report 8763920 (Version 4)
Quarter: 2013Q2

REPORT INFORMATION
  Report Type: Spontaneous
  Country: US (occurrence: US)
  Receive Date: 20120831
  Receipt Date: 20130610
  Transmission Date: 20140414
  Serious: Yes (Disabling, Other)
  Sender: FDA-Public Use
  Company Number: US-009507513-1205USA04995

PATIENT
  Sex: Female

DRUGS (5)
  1. FOSAMAX [Suspect]
     Indication: OSTEOPENIA
     Dosage: 70 MG, UNK
     Route: 048
     Dates: start: 200401, end: 200802
  2. FOSAMAX [Suspect]
     Indication: OSTEOPENIA
     Dosage: 70 MG, QW
     Route: 048
     Dates: start: 200803, end: 200807
  3. ALENDRONATE SODIUM [Suspect]
     Dosage: 70 MG, QW
     Route: 048
     Dates: start: 200808, end: 200901
  4. FOSAMAX PLUS D [Suspect]
     Indication: OSTEOPENIA
     Dosage: 70 MG/2800, QW
     Route: 048
     Dates: start: 200902, end: 200906
  5. ALENDRONATE SODIUM [Suspect]
     Dosage: 70 MG, UNK
     Route: 048
     Dates: start: 200907, end: 200912

REACTIONS (32)
  - Pain [Not Recovered/Not Resolved]
  - Chest pain [Not Recovered/Not Resolved]
  - Osteonecrosis of jaw [Not Recovered/Not Resolved]
  - Odynophagia [Not Recovered/Not Resolved]
  - Dysphagia [Not Recovered/Not Resolved]
  - Dyspepsia [Not Recovered/Not Resolved]
  - Arthralgia [Not Recovered/Not Resolved]
  - Myalgia [Not Recovered/Not Resolved]
  - Bone pain [Not Recovered/Not Resolved]
  - Exposed bone in jaw [Unknown]
  - Dental caries [Unknown]
  - Impaired healing [Unknown]
  - Abscess [Unknown]
  - Fracture [Unknown]
  - Fracture [Unknown]
  - Fracture [Unknown]
  - Hypertension [Unknown]
  - Dental caries [Unknown]
  - Tooth disorder [Unknown]
  - Dental caries [Unknown]
  - Dental caries [Unknown]
  - Device failure [Unknown]
  - Device failure [Unknown]
  - Dental caries [Unknown]
  - Toothache [Unknown]
  - Device failure [Unknown]
  - Dental caries [Unknown]
  - Bone loss [Unknown]
  - Dental care [Unknown]
  - Tooth disorder [Unknown]
  - Gingival pain [Unknown]
  - Gingival infection [Unknown]
